FAERS Safety Report 26069100 (Version 1)
Quarter: 2025Q4

REPORT INFORMATION
  Report Type: Report from Study
  Country: US (occurrence: US)
  Receive Date: 20251120
  Receipt Date: 20251120
  Transmission Date: 20260117
  Serious: Yes (Other)
  Sender: ALEXION PHARMACEUTICALS
  Company Number: US-AstraZeneca-CH-00964916A

PATIENT
  Age: 78 Year
  Sex: Female
  Weight: 97.506 kg

DRUGS (1)
  1. OLAPARIB [Suspect]
     Active Substance: OLAPARIB
     Dosage: 150MG BID

REACTIONS (6)
  - Thrombocytopenia [Unknown]
  - Clonal cytopenia of undetermined significance [Unknown]
  - Fatigue [Unknown]
  - Blood disorder [Unknown]
  - Underdose [Unknown]
  - Myeloid leukaemia [Unknown]
